FAERS Safety Report 5578096-3 (Version None)
Quarter: 2007Q4

REPORT INFORMATION
  Report Type: 
  Country: None (occurrence: None)
  Receive Date: 20071227
  Receipt Date: 20071219
  Transmission Date: 20080405
  Serious: Yes (Death)
  Sender: FDA-Public Use
  Company Number: 144-C5013-07090879

PATIENT
  Sex: Male
  Weight: 70 kg

DRUGS (11)
  1. CC-5013 (LENALIDOMIDE) (CAPSULES) [Suspect]
     Indication: MULTIPLE MYELOMA
     Dosage: 15 MG, DAILY, ORAL
     Route: 048
     Dates: start: 20070906, end: 20070908
  2. LOSARTAN POTASSIUM [Concomitant]
  3. FENTANYL [Concomitant]
  4. DEXAMETHASONE TAB [Concomitant]
  5. OMEPRAZOLE [Concomitant]
  6. VANCOMYCIN [Concomitant]
  7. PIPERACILLIN [Concomitant]
  8. TAZOBACTAM (TAQZOBACTAM) [Concomitant]
  9. AMIODARONE HCL [Concomitant]
  10. EMCONCOR (BISOPROLOL) [Concomitant]
  11. FRANCICLOVIR (FAMCICLOVIR) [Concomitant]

REACTIONS (3)
  - MALIGNANT NEOPLASM PROGRESSION [None]
  - MULTIPLE MYELOMA [None]
  - PANCYTOPENIA [None]
